FAERS Safety Report 19754386 (Version 1)
Quarter: 2021Q3

REPORT INFORMATION
  Report Type: Spontaneous
  Country: US (occurrence: US)
  Receive Date: 20210824
  Receipt Date: 20210824
  Transmission Date: 20211014
  Serious: Yes (Hospitalization)
  Sender: FDA-Public Use
  Company Number: None

PATIENT

DRUGS (2)
  1. OXYTOCIN. [Suspect]
     Active Substance: OXYTOCIN
     Dosage: ?          OTHER STRENGTH:10 USP UNITS/ML;?
     Route: 041
  2. OXYTOCIN. [Suspect]
     Active Substance: OXYTOCIN
     Dosage: ?          OTHER STRENGTH:10 UPS U NITS/ML;?
     Route: 042

REACTIONS (4)
  - Product label issue [None]
  - Packaging design issue [None]
  - Product preparation error [None]
  - Incorrect dose administered [None]
